FAERS Safety Report 18710337 (Version 8)
Quarter: 2021Q1

REPORT INFORMATION
  Report Type: Report from Study
  Country: None (occurrence: US)
  Receive Date: 20210106
  Receipt Date: 20210331
  Transmission Date: 20210419
  Serious: Yes (Other)
  Sender: FDA-Public Use
  Company Number: US-ABBVIE-20K-163-3640167-00

PATIENT
  Age: 71 Year
  Sex: Female
  Weight: 60.38 kg

DRUGS (65)
  1. IMBRUVICA [Suspect]
     Active Substance: IBRUTINIB
     Route: 048
     Dates: start: 20201008
  2. IMBRUVICA [Suspect]
     Active Substance: IBRUTINIB
     Route: 048
     Dates: start: 20201001
  3. IMBRUVICA [Suspect]
     Active Substance: IBRUTINIB
     Route: 048
     Dates: start: 20201008, end: 20210127
  4. IMBRUVICA [Suspect]
     Active Substance: IBRUTINIB
     Route: 048
     Dates: start: 202010
  5. LYSINE HCL [Concomitant]
     Indication: PRODUCT USED FOR UNKNOWN INDICATION
  6. GOLDENSEAL [Concomitant]
     Active Substance: HERBALS\HOMEOPATHICS\GOLDENSEAL
     Indication: PRODUCT USED FOR UNKNOWN INDICATION
  7. GRAPESEED [Concomitant]
     Indication: PRODUCT USED FOR UNKNOWN INDICATION
  8. PSYLLIUM FIBRE [Concomitant]
     Active Substance: HERBALS\PLANTAGO OVATA SEED COAT
     Indication: PRODUCT USED FOR UNKNOWN INDICATION
  9. BROMALINE [Concomitant]
     Indication: PRODUCT USED FOR UNKNOWN INDICATION
  10. VINPOCETINE [Concomitant]
     Active Substance: VINPOCETINE
     Indication: PRODUCT USED FOR UNKNOWN INDICATION
  11. PQQ [Concomitant]
     Indication: PRODUCT USED FOR UNKNOWN INDICATION
  12. TYLENOL [Concomitant]
     Active Substance: ACETAMINOPHEN
     Indication: PRODUCT USED FOR UNKNOWN INDICATION
  13. COVID?19 VACCINE NOS. [Suspect]
     Active Substance: COVID-19 VACCINE NOS
     Route: 030
  14. MAGNESIUM CITRATE. [Concomitant]
     Active Substance: MAGNESIUM CITRATE
     Indication: PRODUCT USED FOR UNKNOWN INDICATION
  15. MAITAKE [Concomitant]
     Active Substance: MAITAKE
     Indication: PRODUCT USED FOR UNKNOWN INDICATION
  16. L?GLUTAMINE [Concomitant]
     Indication: PRODUCT USED FOR UNKNOWN INDICATION
  17. MAGNESIUM L?THREONATE [Concomitant]
     Indication: PRODUCT USED FOR UNKNOWN INDICATION
  18. BARLEY. [Concomitant]
     Active Substance: BARLEY
     Indication: PRODUCT USED FOR UNKNOWN INDICATION
  19. PASSION FLOWER [Concomitant]
     Active Substance: HERBALS\HOMEOPATHICS\PASSIFLORA INCARNATA FLOWER
     Indication: PRODUCT USED FOR UNKNOWN INDICATION
  20. SELENIUM SULFIDE. [Concomitant]
     Active Substance: SELENIUM SULFIDE
     Indication: PRODUCT USED FOR UNKNOWN INDICATION
  21. PEPPERMINT OIL [Concomitant]
     Active Substance: PEPPERMINT OIL
     Indication: PRODUCT USED FOR UNKNOWN INDICATION
  22. MILK THISLE [Concomitant]
     Indication: PRODUCT USED FOR UNKNOWN INDICATION
  23. LICORICE ROOT [Concomitant]
     Active Substance: LICORICE
     Indication: PRODUCT USED FOR UNKNOWN INDICATION
  24. VITAMIN K2 [Concomitant]
     Active Substance: MENAQUINONE 6
     Indication: PRODUCT USED FOR UNKNOWN INDICATION
  25. VITAMIN C [Concomitant]
     Active Substance: ASCORBIC ACID
     Indication: PRODUCT USED FOR UNKNOWN INDICATION
  26. THYROID MEDICATION UNKNOWN NAME [Concomitant]
     Indication: PRODUCT USED FOR UNKNOWN INDICATION
  27. VITAMIN C [Concomitant]
     Active Substance: ASCORBIC ACID
     Indication: PRODUCT USED FOR UNKNOWN INDICATION
  28. VITAMIN D3 [Concomitant]
     Active Substance: CHOLECALCIFEROL
     Indication: PRODUCT USED FOR UNKNOWN INDICATION
  29. GLUCOSAMINE HCL [Concomitant]
     Active Substance: GLUCOSAMINE
     Indication: PRODUCT USED FOR UNKNOWN INDICATION
  30. GINKO [Concomitant]
     Active Substance: GINKGO
     Indication: PRODUCT USED FOR UNKNOWN INDICATION
  31. PEPPERMINT. [Concomitant]
     Active Substance: PEPPERMINT
     Indication: PRODUCT USED FOR UNKNOWN INDICATION
  32. SKULLCAP [Concomitant]
     Active Substance: SCUTELLARIA LATERIFLORA WHOLE
     Indication: PRODUCT USED FOR UNKNOWN INDICATION
  33. AGARIKON [Concomitant]
     Indication: PRODUCT USED FOR UNKNOWN INDICATION
  34. IMBRUVICA [Suspect]
     Active Substance: IBRUTINIB
     Route: 048
     Dates: start: 20201008
  35. IMBRUVICA [Suspect]
     Active Substance: IBRUTINIB
     Route: 048
     Dates: start: 20201008
  36. FOLATE [Concomitant]
     Active Substance: FOLATE SODIUM
     Indication: PRODUCT USED FOR UNKNOWN INDICATION
  37. VITAMIN B COMPLEX [Concomitant]
     Active Substance: CYANOCOBALAMIN\DEXPANTHENOL\NIACINAMIDE\PYRIDOXINE HYDROCHLORIDE\RIBOFLAVIN 5^-PHOSPHATE SODIUM\THIAMINE HYDROCHLORIDE\VITAMIN B COMPLEX
     Indication: PRODUCT USED FOR UNKNOWN INDICATION
  38. MENAQUINONE [Concomitant]
     Indication: PRODUCT USED FOR UNKNOWN INDICATION
  39. COENZYME Q10 [Concomitant]
     Active Substance: DIETARY SUPPLEMENT\UBIDECARENONE
     Indication: PRODUCT USED FOR UNKNOWN INDICATION
  40. VITAMIN D [Concomitant]
     Active Substance: VITAMIN D NOS
     Indication: PRODUCT USED FOR UNKNOWN INDICATION
  41. COENZYME Q10 [Concomitant]
     Active Substance: DIETARY SUPPLEMENT\UBIDECARENONE
     Indication: PRODUCT USED FOR UNKNOWN INDICATION
  42. CBD OIL [Concomitant]
     Active Substance: CANNABIDIOL\HERBALS
     Indication: PAIN
  43. IMBRUVICA [Suspect]
     Active Substance: IBRUTINIB
     Route: 048
  44. IMBRUVICA [Suspect]
     Active Substance: IBRUTINIB
     Route: 048
  45. COVID?19 VACCINE NOS. [Suspect]
     Active Substance: COVID-19 VACCINE NOS
     Indication: COVID-19 IMMUNISATION
     Route: 030
     Dates: start: 20210205
  46. GLUTAMINE [Concomitant]
     Active Substance: GLUTAMINE
     Indication: PRODUCT USED FOR UNKNOWN INDICATION
  47. ZINC. [Concomitant]
     Active Substance: ZINC
     Indication: PRODUCT USED FOR UNKNOWN INDICATION
  48. MAGNESIUM LACTATE [Concomitant]
     Active Substance: MAGNESIUM LACTATE
     Indication: PRODUCT USED FOR UNKNOWN INDICATION
  49. FEVERFEW [Concomitant]
     Active Substance: FEVERFEW
     Indication: PRODUCT USED FOR UNKNOWN INDICATION
  50. APRICOT SEEDS [Concomitant]
     Indication: PRODUCT USED FOR UNKNOWN INDICATION
  51. ALOE VERA [Concomitant]
     Active Substance: ALOE VERA LEAF
     Indication: PRODUCT USED FOR UNKNOWN INDICATION
  52. VITAMIN B COMPLEX [Concomitant]
     Active Substance: CYANOCOBALAMIN\DEXPANTHENOL\NIACINAMIDE\PYRIDOXINE HYDROCHLORIDE\RIBOFLAVIN 5^-PHOSPHATE SODIUM\THIAMINE HYDROCHLORIDE\VITAMIN B COMPLEX
     Indication: PRODUCT USED FOR UNKNOWN INDICATION
     Dosage: HM VITAMIN B?100 COMPLEX
  53. IMBRUVICA [Suspect]
     Active Substance: IBRUTINIB
     Indication: CHRONIC LYMPHOCYTIC LEUKAEMIA
     Route: 048
  54. IMBRUVICA [Suspect]
     Active Substance: IBRUTINIB
     Route: 048
  55. IMBRUVICA [Suspect]
     Active Substance: IBRUTINIB
     Route: 048
     Dates: start: 20201008, end: 20210128
  56. IMBRUVICA [Suspect]
     Active Substance: IBRUTINIB
     Indication: CHRONIC LYMPHOCYTIC LEUKAEMIA
     Route: 048
     Dates: start: 20201008, end: 20210127
  57. ALLOPURINOL. [Concomitant]
     Active Substance: ALLOPURINOL
     Indication: BLOOD URIC ACID
     Dates: start: 20201008, end: 20201117
  58. BENTONITE [Concomitant]
     Active Substance: BENTONITE
     Indication: CONSTIPATION
  59. CITRUS BIOFLAVONID [Concomitant]
     Indication: PRODUCT USED FOR UNKNOWN INDICATION
  60. MELATONIN ER [Concomitant]
     Indication: PRODUCT USED FOR UNKNOWN INDICATION
  61. QUERCETIN [Concomitant]
     Active Substance: QUERCETIN
     Indication: PRODUCT USED FOR UNKNOWN INDICATION
  62. OLIVE LEAF [Concomitant]
     Indication: PRODUCT USED FOR UNKNOWN INDICATION
  63. VITAMIN K [Concomitant]
     Active Substance: PHYTONADIONE
     Indication: PRODUCT USED FOR UNKNOWN INDICATION
  64. GINSENG EXTRACT [Concomitant]
     Active Substance: GINSENG EXTRACT
     Indication: PRODUCT USED FOR UNKNOWN INDICATION
  65. RUTIN [Concomitant]
     Active Substance: RUTIN
     Indication: PRODUCT USED FOR UNKNOWN INDICATION

REACTIONS (100)
  - Lip erythema [Not Recovered/Not Resolved]
  - Mobility decreased [Unknown]
  - Pollakiuria [Unknown]
  - Skin fragility [Unknown]
  - Skin exfoliation [Recovered/Resolved]
  - Hypoaesthesia [Not Recovered/Not Resolved]
  - Immune system disorder [Unknown]
  - Neutrophil count increased [Not Recovered/Not Resolved]
  - Laboratory test abnormal [Not Recovered/Not Resolved]
  - White blood cell count abnormal [Unknown]
  - Asthenia [Unknown]
  - Arthralgia [Not Recovered/Not Resolved]
  - White blood cell count decreased [Recovered/Resolved]
  - Dizziness [Not Recovered/Not Resolved]
  - Pain in extremity [Not Recovered/Not Resolved]
  - Abdominal pain [Not Recovered/Not Resolved]
  - Arthralgia [Not Recovered/Not Resolved]
  - Discouragement [Unknown]
  - Dysgeusia [Recovering/Resolving]
  - Weight decreased [Recovered/Resolved]
  - Skin haemorrhage [Recovered/Resolved]
  - Thyroid disorder [Unknown]
  - Mass [Not Recovered/Not Resolved]
  - Ageusia [Not Recovered/Not Resolved]
  - Bursa injury [Recovered/Resolved]
  - Joint stiffness [Not Recovered/Not Resolved]
  - Product closure removal difficult [Unknown]
  - Bursitis [Not Recovered/Not Resolved]
  - White blood cell disorder [Unknown]
  - Skin papilloma [Not Recovered/Not Resolved]
  - Headache [Not Recovered/Not Resolved]
  - Dyspnoea [Unknown]
  - Skin laceration [Unknown]
  - Haemorrhagic diathesis [Unknown]
  - Nasopharyngitis [Recovered/Resolved]
  - Fall [Unknown]
  - White blood cell count increased [Recovering/Resolving]
  - Cerebral vascular occlusion [Unknown]
  - Fear [Unknown]
  - Nodule [Not Recovered/Not Resolved]
  - Adverse drug reaction [Not Recovered/Not Resolved]
  - Cough [Recovered/Resolved]
  - Gastrooesophageal reflux disease [Not Recovered/Not Resolved]
  - Myalgia [Unknown]
  - Neuropathy peripheral [Not Recovered/Not Resolved]
  - Dysgeusia [Recovered/Resolved]
  - Skin atrophy [Not Recovered/Not Resolved]
  - Fatigue [Recovering/Resolving]
  - Urine odour abnormal [Not Recovered/Not Resolved]
  - Depression [Not Recovered/Not Resolved]
  - Gait inability [Unknown]
  - Ligament pain [Recovering/Resolving]
  - Swelling [Unknown]
  - Muscular weakness [Unknown]
  - Loss of control of legs [Recovered/Resolved]
  - Alopecia [Not Recovered/Not Resolved]
  - Haemorrhage [Recovered/Resolved]
  - Thinking abnormal [Not Recovered/Not Resolved]
  - Oral discomfort [Recovering/Resolving]
  - Sensitive skin [Not Recovered/Not Resolved]
  - Musculoskeletal disorder [Not Recovered/Not Resolved]
  - Injection site nodule [Recovering/Resolving]
  - Musculoskeletal chest pain [Not Recovered/Not Resolved]
  - Anxiety [Not Recovered/Not Resolved]
  - Constipation [Recovered/Resolved]
  - Pain [Recovering/Resolving]
  - Thyroid function test abnormal [Recovered/Resolved]
  - Precancerous skin lesion [Unknown]
  - Gait disturbance [Unknown]
  - Vascular occlusion [Not Recovered/Not Resolved]
  - Pollakiuria [Not Recovered/Not Resolved]
  - Throat clearing [Not Recovered/Not Resolved]
  - Rotator cuff syndrome [Unknown]
  - Decreased appetite [Recovered/Resolved]
  - Pain [Not Recovered/Not Resolved]
  - Frustration tolerance decreased [Unknown]
  - Feeding disorder [Recovered/Resolved]
  - Illness [Not Recovered/Not Resolved]
  - Back pain [Recovering/Resolving]
  - Peripheral coldness [Not Recovered/Not Resolved]
  - Paraesthesia [Not Recovered/Not Resolved]
  - Balance disorder [Unknown]
  - Malaise [Unknown]
  - Insomnia [Not Recovered/Not Resolved]
  - Vomiting [Not Recovered/Not Resolved]
  - Cellulitis [Recovered/Resolved]
  - Anger [Unknown]
  - Blood pressure increased [Unknown]
  - Pyrexia [Unknown]
  - Mental impairment [Not Recovered/Not Resolved]
  - Hypoacusis [Unknown]
  - Somatic dysfunction [Unknown]
  - Feeling hot [Recovering/Resolving]
  - Unevaluable event [Not Recovered/Not Resolved]
  - Muscle spasms [Not Recovered/Not Resolved]
  - Contusion [Not Recovered/Not Resolved]
  - Anaemia [Recovered/Resolved]
  - Skin odour abnormal [Not Recovered/Not Resolved]
  - Vascular calcification [Unknown]
  - Joint swelling [Unknown]

NARRATIVE: CASE EVENT DATE: 2020
